FAERS Safety Report 4278398-7 (Version None)
Quarter: 2004Q1

REPORT INFORMATION
  Report Type: 
  Country: None (occurrence: None)
  Receive Date: 20040123
  Receipt Date: 20031104
  Transmission Date: 20041129
  Serious: Yes (Hospitalization, Other)
  Sender: FDA-Public Use
  Company Number: FR-BRISTOL-MYERS SQUIBB COMPANY-12428082

PATIENT
  Age: 36 Year
  Sex: Female
  Weight: 84 kg

DRUGS (3)
  1. KENACORT [Suspect]
     Indication: HYPERSENSITIVITY
     Route: 030
     Dates: start: 20030825, end: 20030825
  2. TEGRETOL [Concomitant]
     Dates: start: 19800101
  3. URBANYL [Concomitant]
     Dates: start: 19800101

REACTIONS (4)
  - FAT NECROSIS [None]
  - INJECTION SITE MASS [None]
  - INJECTION SITE PAIN [None]
  - STAPHYLOCOCCAL INFECTION [None]
